FAERS Safety Report 8103372-X (Version None)
Quarter: 2012Q1

REPORT INFORMATION
  Report Type: 
  Country: None (occurrence: None)
  Receive Date: 20120201
  Receipt Date: 20120130
  Transmission Date: 20120608
  Serious: Yes (Other)
  Sender: FDA-Public Use
  Company Number: US-PFIZER INC-2012025353

PATIENT
  Sex: Female
  Weight: 80 kg

DRUGS (6)
  1. ALPRAZOLAM [Concomitant]
     Indication: ANXIETY
     Dosage: 1 MG, 3X/DAY
  2. CHANTIX [Suspect]
     Indication: SMOKING CESSATION THERAPY
     Dosage: 0.5 MG, DAILY
     Route: 048
     Dates: start: 20110101
  3. CHANTIX [Suspect]
     Dosage: 0.5 MG, DAILY
     Dates: start: 20120101, end: 20120101
  4. NORCO [Concomitant]
     Indication: BACK DISORDER
     Dosage: 60/1950 MG
  5. CHANTIX [Suspect]
     Dosage: 1 MG, 2X/DAY
     Dates: start: 20120101
  6. ALPRAZOLAM [Concomitant]
     Indication: SLEEP DISORDER

REACTIONS (8)
  - MEMORY IMPAIRMENT [None]
  - NAUSEA [None]
  - HYPERSOMNIA [None]
  - FEELING ABNORMAL [None]
  - COGNITIVE DISORDER [None]
  - ANXIETY [None]
  - MENTAL DISORDER [None]
  - ABNORMAL DREAMS [None]
